FAERS Safety Report 20406155 (Version 7)
Quarter: 2022Q2

REPORT INFORMATION
  Report Type: Report from Study
  Country: US (occurrence: US)
  Receive Date: 20220131
  Receipt Date: 20220422
  Transmission Date: 20220720
  Serious: Yes (Hospitalization, Other)
  Sender: FDA-Public Use
  Company Number: US-HORIZON THERAPEUTICS-HZN-2022-000700

PATIENT

DRUGS (6)
  1. TEPEZZA [Suspect]
     Active Substance: TEPROTUMUMAB-TRBW
     Indication: Endocrine ophthalmopathy
     Dosage: 1320 MG, EVERY 3 WEEKS
     Route: 042
     Dates: start: 20211029
  2. TEPEZZA [Suspect]
     Active Substance: TEPROTUMUMAB-TRBW
     Dosage: 1320 MG, EVERY 3 WEEKS
     Route: 042
     Dates: start: 20220225
  3. METHIMAZOLE [Concomitant]
     Active Substance: METHIMAZOLE
  4. SELENIUM [Concomitant]
     Active Substance: SELENIUM
  5. ALOGLIPTIN;PIOGLITAZONE [Concomitant]
     Indication: Product used for unknown indication
  6. REFRESH OPTIVE MEGA-3 [Concomitant]
     Active Substance: CARBOXYMETHYLCELLULOSE SODIUM\GLYCERIN\POLYSORBATE 80
     Indication: Product used for unknown indication

REACTIONS (6)
  - Diabetes mellitus [Not Recovered/Not Resolved]
  - Ketoacidosis [Recovering/Resolving]
  - Therapeutic response decreased [Unknown]
  - Muscle spasms [Recovered/Resolved]
  - Diplopia [Unknown]
  - Condition aggravated [Unknown]

NARRATIVE: CASE EVENT DATE: 20220124
